FAERS Safety Report 20785801 (Version 1)
Quarter: 2022Q2

REPORT INFORMATION
  Report Type: Spontaneous
  Country: US (occurrence: None)
  Receive Date: 20220504
  Receipt Date: 20220504
  Transmission Date: 20220720
  Serious: No
  Sender: FDA-Public Use
  Company Number: US-ROCHE-2885548

PATIENT
  Age: 34 Year
  Sex: Female

DRUGS (1)
  1. OCREVUS [Suspect]
     Active Substance: OCRELIZUMAB
     Indication: Multiple sclerosis relapse
     Route: 042
     Dates: start: 201804

REACTIONS (5)
  - Illness [Recovering/Resolving]
  - Nasopharyngitis [Recovering/Resolving]
  - Ageusia [Recovering/Resolving]
  - Anosmia [Recovering/Resolving]
  - Rhinorrhoea [Recovered/Resolved]

NARRATIVE: CASE EVENT DATE: 20180401
